FAERS Safety Report 17336765 (Version 1)
Quarter: 2020Q1

REPORT INFORMATION
  Report Type: Spontaneous
  Country: US (occurrence: US)
  Receive Date: 20200128
  Receipt Date: 20200128
  Transmission Date: 20200409
  Serious: Yes (Other)
  Sender: FDA-Public Use
  Company Number: US-ACS-001606

PATIENT
  Age: 7 Year
  Sex: Female

DRUGS (1)
  1. MEROPENEM FOR INJECTION USP [Suspect]
     Active Substance: MEROPENEM
     Route: 065

REACTIONS (1)
  - Abdominal distension [Unknown]
